FAERS Safety Report 20535237 (Version 1)
Quarter: 2022Q1

REPORT INFORMATION
  Report Type: Spontaneous
  Country: US (occurrence: US)
  Receive Date: 20220302
  Receipt Date: 20220302
  Transmission Date: 20220423
  Serious: Yes (Other)
  Sender: FDA-Public Use
  Company Number: US-CELLTRION INC.-2022US002304

PATIENT

DRUGS (2)
  1. TRUXIMA [Suspect]
     Active Substance: RITUXIMAB-ABBS
     Indication: Sjogren^s syndrome
     Dosage: 1000 MG 2 WEEKS EVERY 6 MONTHS
     Dates: start: 20210830
  2. TRUXIMA [Suspect]
     Active Substance: RITUXIMAB-ABBS
     Indication: Arteritis
     Dosage: 1000 MG 2 WEEKS EVERY 6 MONTHS
     Dates: start: 20210915

REACTIONS (3)
  - Sjogren^s syndrome [Unknown]
  - Arteritis [Unknown]
  - Off label use [Unknown]
